FAERS Safety Report 7690679-3 (Version None)
Quarter: 2011Q3

REPORT INFORMATION
  Report Type: 
  Country: None (occurrence: None)
  Receive Date: 20110818
  Receipt Date: 20110816
  Transmission Date: 20111222
  Serious: Yes (Life-Threatening, Hospitalization, Other)
  Sender: FDA-Public Use
  Company Number: CA-PFIZER INC-2011084570

PATIENT
  Age: 63 Year
  Sex: Female

DRUGS (8)
  1. VARENICLINE TARTRATE [Suspect]
     Indication: SMOKING CESSATION THERAPY
     Dosage: 0.5 MG, 1X/DAY FOR 3 DAYS
     Route: 048
     Dates: start: 20080211, end: 20080214
  2. VARENICLINE TARTRATE [Suspect]
     Dosage: 0.5 MG, 2X/DAY FOR 4 DAYS
     Route: 048
     Dates: start: 20080215, end: 20080218
  3. RAMIPRIL [Concomitant]
     Dosage: 2.5 MG, 1X/DAY
     Route: 048
  4. NPH INSULIN [Concomitant]
     Dosage: UNK
  5. VARENICLINE TARTRATE [Suspect]
     Dosage: 1 MG, 2X/DAY
     Route: 048
     Dates: start: 20080219, end: 20080221
  6. FUROSEMIDE [Concomitant]
     Dosage: 20 MG, 3X/DAY
     Route: 048
  7. HUMULIN N [Concomitant]
     Dosage: 12 UNITS (100 UNIT/ML) AT BEDTIME
     Route: 058
  8. HUMALOG PEN [Concomitant]
     Dosage: 10 UNITS, 3X/DAY
     Route: 058

REACTIONS (9)
  - RENAL IMPAIRMENT [None]
  - VOMITING [None]
  - BLOOD GLUCOSE INCREASED [None]
  - LOSS OF CONSCIOUSNESS [None]
  - NAUSEA [None]
  - DREAMY STATE [None]
  - BLOOD PRESSURE INCREASED [None]
  - INFLUENZA LIKE ILLNESS [None]
  - TRANSFUSION [None]
